FAERS Safety Report 6199400-1 (Version None)
Quarter: 2009Q2

REPORT INFORMATION
  Report Type: 
  Country: None (occurrence: None)
  Receive Date: 20090520
  Receipt Date: 20090520
  Transmission Date: 20091009
  Serious: Yes (Life-Threatening)
  Sender: FDA-Public Use
  Company Number: None

PATIENT
  Age: 31 Year
  Sex: Female
  Weight: 65.7716 kg

DRUGS (3)
  1. MIRENA [Suspect]
     Indication: CONTRACEPTION
     Dates: start: 20090427, end: 20090513
  2. TOPAMAX [Concomitant]
  3. LEXAPRO [Concomitant]

REACTIONS (5)
  - ANAPHYLACTIC REACTION [None]
  - HEADACHE [None]
  - NAUSEA [None]
  - RASH [None]
  - VISION BLURRED [None]
